FAERS Safety Report 25105683 (Version 1)
Quarter: 2025Q1

REPORT INFORMATION
  Report Type: Spontaneous
  Country: US (occurrence: US)
  Receive Date: 20250321
  Receipt Date: 20250321
  Transmission Date: 20250409
  Serious: No
  Sender: BRAEBURN PHARMACEUTICALS
  Company Number: US-BRAEBURN-US-BRA-25-000091

PATIENT
  Sex: Female

DRUGS (1)
  1. BRIXADI [Suspect]
     Active Substance: BUPRENORPHINE
     Indication: Alcoholism
     Dosage: 8 MILLIGRAM, WEEKLY
     Route: 058

REACTIONS (2)
  - Off label use [Unknown]
  - Product use in unapproved indication [Unknown]
